FAERS Safety Report 9739288 (Version 3)
Quarter: 2013Q4

REPORT INFORMATION
  Report Type: Spontaneous
  Country: JP (occurrence: JP)
  Receive Date: 20131209
  Receipt Date: 20131220
  Transmission Date: 20140711
  Serious: Yes (Disabling)
  Sender: FDA-Public Use
  Company Number: JP-ELI_LILLY_AND_COMPANY-JP201311000960

PATIENT
  Age: 88 Year
  Sex: Female
  Weight: 48 kg

DRUGS (9)
  1. CYMBALTA [Suspect]
     Indication: DEPRESSION
     Dosage: 20 MG, BID
     Route: 048
     Dates: start: 201208, end: 20131024
  2. CYMBALTA [Suspect]
     Indication: PROCTALGIA
  3. BUP-4 [Suspect]
     Indication: POLLAKIURIA
     Dosage: 10 MG, BID
     Route: 048
     Dates: start: 20130924, end: 20131020
  4. LYRICA [Suspect]
     Indication: PROCTALGIA
     Dosage: 75 MG, BID
     Route: 048
     Dates: start: 201208, end: 20131023
  5. ETIZOLAM [Suspect]
     Indication: DEPRESSION
     Dosage: 0.03 G, TID
     Route: 048
     Dates: start: 20130919
  6. GRAMALIL [Suspect]
     Indication: DEPRESSION
     Dosage: 0.3 G, TID
     Route: 048
     Dates: start: 20130919, end: 20131105
  7. ATARAX-P /00058402/ [Suspect]
     Indication: DEPRESSION
     Dosage: 1 DF, PRN
     Route: 048
     Dates: start: 20131005, end: 20131020
  8. ATARAX-P /00058402/ [Suspect]
     Indication: PRURITUS
  9. BLOPRESS [Concomitant]
     Indication: HYPERTENSION
     Dosage: 8 MG, QD
     Route: 048
     Dates: start: 201208

REACTIONS (2)
  - Neurogenic bladder [Not Recovered/Not Resolved]
  - Urinary retention [Not Recovered/Not Resolved]
